FAERS Safety Report 9511035 (Version 1)
Quarter: 2013Q1

REPORT INFORMATION
  Report Type: Spontaneous
  Country: US (occurrence: None)
  Receive Date: 20130305
  Receipt Date: 20130305
  Transmission Date: 20140127
  Serious: Yes (Other)
  Sender: FDA-Public Use
  Company Number: 163-21880-11072918

PATIENT
  Age: 61 Year
  Sex: Male

DRUGS (12)
  1. REVLIMID [Suspect]
     Indication: PLASMA CELL MYELOMA
     Dosage: 10 MG, 1 IN 1 D, PO
     Route: 048
     Dates: start: 201001
  2. ACYCLOVIR (ACICLOVIR) (UNKNOWN) [Concomitant]
  3. PRAVASTATIN (PRAVASTATIN) (UNKNOWN) [Concomitant]
  4. VITAMIN B (VITAMIN B) (UNKNOWN0 [Concomitant]
  5. ZOMETA (ZOLEDRONIC ACID) (UNKNOWN) [Concomitant]
  6. ALLOPURINOL (ALLOPURINOL) (UNKNOWN) [Concomitant]
  7. AMBIEN (ZOLPIDEM TARTRATE) (UNKNOWN) [Concomitant]
  8. ASPIRIN (ACETYLSALICYLIC ACID) (UNKNOWN) (ACETYLSALICYLIC ACID) [Concomitant]
  9. CITRACAL + D (CITRACAL + D) (UNKNOWN) [Concomitant]
  10. LISINOPRIL (LISINOPRIL) (UNKNOWN) [Concomitant]
  11. METOPROLOL (METOPROLOL) (UNKNOWN) [Concomitant]
  12. OXYCONTIN (OXYCODONE HYDROCHLORIDE) (UNKNOWN) [Concomitant]

REACTIONS (3)
  - Neuropathy peripheral [None]
  - Asthenia [None]
  - Nasopharyngitis [None]
